FAERS Safety Report 7276833-3 (Version None)
Quarter: 2011Q1

REPORT INFORMATION
  Report Type: 
  Country: None (occurrence: None)
  Receive Date: 20110207
  Receipt Date: 20110126
  Transmission Date: 20110831
  Serious: Yes (Hospitalization)
  Sender: FDA-Public Use
  Company Number: US-BIOGENIDEC-2011BI003018

PATIENT
  Age: 61 Year
  Sex: Female
  Weight: 63 kg

DRUGS (1)
  1. TYSABRI [Suspect]
     Indication: MULTIPLE SCLEROSIS
     Route: 042
     Dates: start: 20070501, end: 20101130

REACTIONS (4)
  - LOWER LIMB FRACTURE [None]
  - IMPAIRED HEALING [None]
  - DEVICE INTOLERANCE [None]
  - POSTOPERATIVE WOUND INFECTION [None]
